FAERS Safety Report 5390957-7 (Version None)
Quarter: 2007Q3

REPORT INFORMATION
  Report Type: 
  Country: None (occurrence: None)
  Receive Date: 20070716
  Receipt Date: 20060721
  Transmission Date: 20080115
  Serious: Yes (Other)
  Sender: FDA-Public Use
  Company Number: MPS1-10573

PATIENT
  Age: 14 Month
  Sex: Female
  Weight: 10 kg

DRUGS (2)
  1. ALDURAZYME [Suspect]
     Indication: MUCOPOLYSACCHARIDOSIS I
     Dosage: 5.8 MG QWK IV
     Route: 042
     Dates: start: 20060101
  2. ALBUMIN (HUMAN) [Suspect]
     Indication: DRUG THERAPY

REACTIONS (1)
  - HUMAN T-CELL LYMPHOTROPIC VIRUS INFECTION [None]
